FAERS Safety Report 7563186-6 (Version None)
Quarter: 2011Q2

REPORT INFORMATION
  Report Type: 
  Country: None (occurrence: None)
  Receive Date: 20110622
  Receipt Date: 20110616
  Transmission Date: 20111010
  Serious: Yes (Death)
  Sender: FDA-Public Use
  Company Number: TN-SANOFI-AVENTIS-2011SA037298

PATIENT
  Age: 53 Year
  Sex: Male

DRUGS (10)
  1. PLAVIX [Suspect]
     Route: 048
     Dates: start: 20100331, end: 20110603
  2. INSULATARD [Concomitant]
     Route: 058
     Dates: end: 20110603
  3. RAMIPRIL [Concomitant]
     Route: 048
     Dates: end: 20110603
  4. ASPEGIC 325 [Concomitant]
     Route: 048
     Dates: end: 20110603
  5. SIMVASTATIN [Concomitant]
     Route: 048
     Dates: end: 20110603
  6. LOVENOX [Concomitant]
     Route: 058
     Dates: end: 20110603
  7. LASIX [Concomitant]
     Route: 048
     Dates: end: 20110603
  8. KREDEX [Concomitant]
     Route: 048
     Dates: end: 20110603
  9. PLAVIX [Suspect]
     Route: 048
     Dates: start: 20100331, end: 20110603
  10. FAMOTIDINE [Concomitant]
     Route: 048
     Dates: end: 20110603

REACTIONS (1)
  - SEPTIC SHOCK [None]
